FAERS Safety Report 12412822 (Version 4)
Quarter: 2016Q3

REPORT INFORMATION
  Report Type: Spontaneous
  Country: US (occurrence: US)
  Receive Date: 20160527
  Receipt Date: 20160928
  Transmission Date: 20161109
  Serious: No
  Sender: FDA-Public Use
  Company Number: US-PFIZER INC-2016270509

PATIENT
  Age: 77 Year
  Sex: Male
  Weight: 122.45 kg

DRUGS (4)
  1. IBRANCE [Suspect]
     Active Substance: PALBOCICLIB
     Indication: BREAST CANCER RECURRENT
     Dosage: 100 MG, CYCLIC, ONCE PER DAY FOR 21 DAYS
     Route: 048
     Dates: start: 20160317
  2. FASLODEX [Concomitant]
     Active Substance: FULVESTRANT
     Dosage: 1000 MG, UNK
     Dates: start: 20160328
  3. FASLODEX [Concomitant]
     Active Substance: FULVESTRANT
     Dosage: 500 MG, UNK
     Dates: start: 20160229
  4. FASLODEX [Concomitant]
     Active Substance: FULVESTRANT
     Dosage: 500 MG, UNK
     Dates: start: 20160313

REACTIONS (9)
  - Gait disturbance [Recovered/Resolved]
  - Coordination abnormal [Recovered/Resolved]
  - Fine motor skill dysfunction [Recovered/Resolved]
  - Disease recurrence [Unknown]
  - Breast cancer recurrent [Unknown]
  - Pain [Not Recovered/Not Resolved]
  - Hypoaesthesia [Not Recovered/Not Resolved]
  - Product use issue [Unknown]
  - Balance disorder [Recovering/Resolving]

NARRATIVE: CASE EVENT DATE: 20160317
